FAERS Safety Report 4798309-5 (Version None)
Quarter: 2005Q4

REPORT INFORMATION
  Report Type: 
  Country: None (occurrence: None)
  Receive Date: 20051014
  Receipt Date: 20051003
  Transmission Date: 20060501
  Serious: Yes (Hospitalization)
  Sender: FDA-Public Use
  Company Number: FR-BRISTOL-MYERS SQUIBB COMPANY-13129242

PATIENT
  Age: 57 Year
  Sex: Male

DRUGS (5)
  1. ELISOR TABS [Suspect]
     Route: 048
     Dates: end: 20050807
  2. DAONIL [Suspect]
     Route: 048
     Dates: start: 19950630, end: 20050807
  3. MEDIATOR [Suspect]
     Route: 048
     Dates: end: 20050807
  4. GLUCOR [Suspect]
     Dates: start: 19950630, end: 20050807
  5. HYTACAND [Suspect]
     Dates: end: 20050807

REACTIONS (2)
  - NEPHRITIS ALLERGIC [None]
  - RENAL FAILURE ACUTE [None]
